FAERS Safety Report 11768712 (Version 2)
Quarter: 2015Q4

REPORT INFORMATION
  Report Type: Spontaneous
  Country: DE (occurrence: DE)
  Receive Date: 20151123
  Receipt Date: 20151201
  Transmission Date: 20160304
  Serious: Yes (Life-Threatening, Hospitalization)
  Sender: FDA-Public Use
  Company Number: DE-AUROBINDO-AUR-APL-2015-10313

PATIENT
  Age: 31 Year
  Sex: Male
  Weight: 120 kg

DRUGS (5)
  1. METFORMIN 500MG [Suspect]
     Active Substance: METFORMIN HYDROCHLORIDE
     Indication: TYPE 2 DIABETES MELLITUS
     Dosage: 500 MG, ONCE A DAY
     Route: 048
     Dates: start: 20151022
  2. BEZAFIBRAT [Concomitant]
     Indication: HYPERTRIGLYCERIDAEMIA
     Dosage: 400 MG, DAILY
     Route: 048
     Dates: start: 20151022
  3. JANUVIA [Suspect]
     Active Substance: SITAGLIPTIN PHOSPHATE
     Indication: TYPE 2 DIABETES MELLITUS
     Dosage: 100 MG, DAILY
     Route: 048
     Dates: start: 20151022
  4. PANTOZOL [Concomitant]
     Active Substance: PANTOPRAZOLE SODIUM
     Indication: PROPHYLAXIS AGAINST GASTROINTESTINAL ULCER
     Dosage: 80 MG, DAILY
     Route: 048
     Dates: start: 20151022
  5. FORXIGA [Suspect]
     Active Substance: DAPAGLIFLOZIN
     Indication: TYPE 2 DIABETES MELLITUS
     Dosage: 10 MG, DAILY
     Route: 048
     Dates: start: 20151022

REACTIONS (5)
  - Ketoacidosis [Recovering/Resolving]
  - Cold sweat [Recovering/Resolving]
  - Speech disorder [Recovering/Resolving]
  - Somnolence [Recovering/Resolving]
  - Dehydration [Recovering/Resolving]

NARRATIVE: CASE EVENT DATE: 20151025
